FAERS Safety Report 16155830 (Version 3)
Quarter: 2021Q3

REPORT INFORMATION
  Report Type: Spontaneous
  Country: None (occurrence: TW)
  Receive Date: 20190404
  Receipt Date: 20210722
  Transmission Date: 20211014
  Serious: Yes (Death, Life-Threatening, Hospitalization, Other)
  Sender: FDA-Public Use
  Company Number: TW-SA-2019SA091713

PATIENT
  Age: 75 Year
  Sex: Male

DRUGS (2)
  1. CEFOXITIN [Concomitant]
     Active Substance: CEFOXITIN SODIUM
     Indication: CHOLANGITIS ACUTE
  2. RANITIDINE. [Suspect]
     Active Substance: RANITIDINE
     Indication: PEPTIC ULCER
     Dosage: 2 ML, 1X
     Route: 042

REACTIONS (6)
  - Respiratory failure [Fatal]
  - Pneumothorax [Fatal]
  - Injection site pain [Unknown]
  - Cardio-respiratory arrest [Fatal]
  - Anaphylactic reaction [Fatal]
  - Irritability [Fatal]
